FAERS Safety Report 6656905-4 (Version None)
Quarter: 2010Q1

REPORT INFORMATION
  Report Type: 
  Country: None (occurrence: None)
  Receive Date: 20100329
  Receipt Date: 20100329
  Transmission Date: 20100710
  Serious: Yes (Hospitalization)
  Sender: FDA-Public Use
  Company Number: None

PATIENT
  Age: 41 Year
  Sex: Female
  Weight: 90.7194 kg

DRUGS (1)
  1. MIRENA [Suspect]
     Indication: MENORRHAGIA
     Dosage: 20MG 1/5YRS VAG
     Route: 067
     Dates: start: 20081101, end: 20090701

REACTIONS (7)
  - BLOOD COUNT ABNORMAL [None]
  - CARDIO-RESPIRATORY ARREST [None]
  - DRUG ADMINISTRATION ERROR [None]
  - HAEMORRHAGE [None]
  - PULMONARY OEDEMA [None]
  - THROMBOSIS [None]
  - WEIGHT INCREASED [None]
